FAERS Safety Report 19144702 (Version 2)
Quarter: 2021Q2

REPORT INFORMATION
  Report Type: Report from Study
  Country: RU (occurrence: RU)
  Receive Date: 20210416
  Receipt Date: 20210422
  Transmission Date: 20210717
  Serious: Yes (Other)
  Sender: FDA-Public Use
  Company Number: RU-AUROBINDO-AUR-APL-2021-015566

PATIENT
  Sex: Female

DRUGS (4)
  1. TIVICAY [Suspect]
     Active Substance: DOLUTEGRAVIR SODIUM
     Indication: HIV INFECTION
     Dosage: 50 MILLIGRAM, DAILY, FIRST TRIMESTER
     Route: 048
     Dates: start: 20200804, end: 20210128
  2. NARLAPREVIR [Concomitant]
     Active Substance: NARLAPREVIR
     Indication: PRODUCT USED FOR UNKNOWN INDICATION
     Dosage: UNK, FIRST TRIMESTER
     Route: 065
  3. DACLATASVIR. [Concomitant]
     Active Substance: DACLATASVIR
     Indication: PRODUCT USED FOR UNKNOWN INDICATION
     Dosage: UNK, FIRST TRIMESTER
     Route: 065
  4. LAMIVUDINE. [Suspect]
     Active Substance: LAMIVUDINE
     Indication: HIV INFECTION
     Dosage: 300 MILLIGRAM, DAILY, FIRST TRIMESTER
     Route: 048
     Dates: start: 20140620

REACTIONS (2)
  - Maternal exposure during pregnancy [Unknown]
  - Abortion induced [Unknown]

NARRATIVE: CASE EVENT DATE: 20210208
